FAERS Safety Report 4784688-1 (Version None)
Quarter: 2005Q3

REPORT INFORMATION
  Report Type: 
  Country: None (occurrence: None)
  Receive Date: 20050928
  Receipt Date: 20050915
  Transmission Date: 20060218
  Serious: Yes (Hospitalization, Other)
  Sender: FDA-Public Use
  Company Number: 2005016042

PATIENT
  Sex: Male

DRUGS (2)
  1. NEURONTIN [Suspect]
     Indication: FIBROMYALGIA
     Dates: start: 19990907
  2. NEURONTIN [Suspect]
     Indication: RESTLESS LEGS SYNDROME
     Dates: start: 19990907

REACTIONS (36)
  - AGGRESSION [None]
  - AGITATION [None]
  - AMNESIA [None]
  - BACTERAEMIA [None]
  - BALANCE DISORDER [None]
  - BIPOLAR DISORDER [None]
  - BRAIN OEDEMA [None]
  - CEREBELLAR SYNDROME [None]
  - CEREBROVASCULAR ACCIDENT [None]
  - CONVULSION [None]
  - DRUG DEPENDENCE [None]
  - DRUG INEFFECTIVE [None]
  - ENCEPHALOMALACIA [None]
  - FAECAL INCONTINENCE [None]
  - GAIT DISTURBANCE [None]
  - GUN SHOT WOUND [None]
  - HEMIPARESIS [None]
  - HEMIPLEGIA [None]
  - HYPERTONIA [None]
  - INTENTIONAL SELF-INJURY [None]
  - KYPHOSIS [None]
  - MAJOR DEPRESSION [None]
  - MOOD SWINGS [None]
  - MUSCULOSKELETAL PAIN [None]
  - PARAPARESIS [None]
  - PNEUMONIA [None]
  - POSTURE ABNORMAL [None]
  - PULMONARY CONGESTION [None]
  - PULMONARY VASCULAR DISORDER [None]
  - RESPIRATORY FAILURE [None]
  - SINUS DISORDER [None]
  - SUBDURAL HAEMATOMA [None]
  - SUICIDE ATTEMPT [None]
  - THROMBOSIS [None]
  - TRAUMATIC BRAIN INJURY [None]
  - URINARY INCONTINENCE [None]
